FAERS Safety Report 9017311 (Version 2)
Quarter: 2013Q1

REPORT INFORMATION
  Report Type: Spontaneous
  Country: US (occurrence: US)
  Receive Date: 20130117
  Receipt Date: 20130304
  Transmission Date: 20140127
  Serious: Yes (Other)
  Sender: FDA-Public Use
  Company Number: US-PFIZER INC-2013017941

PATIENT
  Age: 77 Year
  Sex: Male

DRUGS (18)
  1. INLYTA [Suspect]
     Indication: RENAL CANCER
     Dosage: 1 MG, UNK
     Dates: start: 20121207
  2. INLYTA [Suspect]
     Dosage: 3 MG, 2X/DAY
     Route: 048
     Dates: start: 20121212, end: 20121227
  3. ASPIR-81 [Concomitant]
     Dosage: UNK
  4. FINASTERIDE [Concomitant]
     Dosage: UNK
  5. VITAMIN D [Concomitant]
     Dosage: UNK
  6. BEE POLLEN [Concomitant]
     Dosage: UNK
  7. FISH OIL [Concomitant]
     Dosage: UNK
  8. TRANDOLAPRIL [Concomitant]
     Dosage: UNK
  9. CALCIUM 600 [Concomitant]
     Dosage: UNK
  10. FLOMAX [Concomitant]
     Dosage: UNK
  11. TAMSULOSIN HYDROCHLORIDE [Concomitant]
     Dosage: UNK
  12. CARVEDILOL [Concomitant]
     Dosage: UNK
  13. TEA, GREEN [Concomitant]
     Dosage: UNK
  14. VYTORIN [Concomitant]
     Dosage: UNK
  15. COMPLEX B-100 [Concomitant]
     Dosage: UNK
  16. ZOMETA [Concomitant]
     Indication: METASTASES TO BONE
     Dosage: 3.5 MG, Q 4WK (PER GFR)
     Dates: start: 20120621
  17. FENTANYL [Concomitant]
     Dosage: UNK
  18. RANITIDINE HYDROCHLORIDE [Concomitant]
     Dosage: UNK

REACTIONS (6)
  - Decreased appetite [Unknown]
  - Dyspnoea [Unknown]
  - Confusional state [Recovered/Resolved]
  - Asthenia [Unknown]
  - Nocturnal dyspnoea [Recovering/Resolving]
  - Fatigue [Recovered/Resolved]
